FAERS Safety Report 6741453-3 (Version None)
Quarter: 2010Q2

REPORT INFORMATION
  Report Type: 
  Country: None (occurrence: None)
  Receive Date: 20100526
  Receipt Date: 20100514
  Transmission Date: 20101027
  Serious: Yes (Other)
  Sender: FDA-Public Use
  Company Number: US-JNJFOC-20100506749

PATIENT
  Age: 22 Month
  Sex: Female
  Weight: 11.79 kg

DRUGS (2)
  1. CONCENTRATED TYLENOL INFANT DROPS [Suspect]
     Route: 048
  2. CONCENTRATED TYLENOL INFANT DROPS [Suspect]
     Indication: TEETHING
     Dosage: AS PRESCRIBED ON BOTTLE AT NIGHT BEFORE BED
     Route: 048

REACTIONS (3)
  - DIARRHOEA [None]
  - PRODUCT QUALITY ISSUE [None]
  - VIRAL INFECTION [None]
